FAERS Safety Report 25743383 (Version 1)
Quarter: 2025Q3

REPORT INFORMATION
  Report Type: Other
  Country: US (occurrence: US)
  Receive Date: 20250830
  Receipt Date: 20250830
  Transmission Date: 20251020
  Serious: Yes (Hospitalization)
  Sender: SERVIER
  Company Number: US-SERVIER-S25012253

PATIENT

DRUGS (2)
  1. CALASPARGASE PEGOL [Suspect]
     Active Substance: CALASPARGASE PEGOL
     Indication: T-cell type acute leukaemia
     Route: 042
  2. DEXAMETHASONE [Suspect]
     Active Substance: DEXAMETHASONE
     Indication: T-cell type acute leukaemia
     Route: 065

REACTIONS (2)
  - Hypertriglyceridaemia [Recovering/Resolving]
  - Pulmonary embolism [Recovering/Resolving]
